FAERS Safety Report 24575785 (Version 1)
Quarter: 2024Q4

REPORT INFORMATION
  Report Type: Spontaneous
  Country: US (occurrence: None)
  Receive Date: 20241101
  Receipt Date: 20241101
  Transmission Date: 20250115
  Serious: Yes (unspecified)
  Sender: Public
  Company Number: None

PATIENT
  Age: 84 Year
  Sex: Male

DRUGS (1)
  1. REMDESIVIR [Suspect]
     Active Substance: REMDESIVIR
     Indication: COVID-19
     Dosage: 100.00 MG DAILY INTRAVENOUS?
     Route: 042
     Dates: start: 20240622, end: 20240623

REACTIONS (1)
  - Atrioventricular block second degree [None]

NARRATIVE: CASE EVENT DATE: 20240625
